FAERS Safety Report 15925583 (Version 6)
Quarter: 2020Q3

REPORT INFORMATION
  Report Type: Report from Study
  Country: US (occurrence: US)
  Receive Date: 20190206
  Receipt Date: 20200901
  Transmission Date: 20201102
  Serious: Yes (Hospitalization, Disabling, Other)
  Sender: FDA-Public Use
  Company Number: US-SA-2017SA116705

PATIENT

DRUGS (10)
  1. ALEMTUZUMAB [Suspect]
     Active Substance: ALEMTUZUMAB
     Indication: MULTIPLE SCLEROSIS
     Dosage: 12 MG, QD
     Route: 041
     Dates: start: 20170619, end: 20170621
  2. ALLEGRA [Concomitant]
     Active Substance: FEXOFENADINE HYDROCHLORIDE
     Indication: SEASONAL ALLERGY
     Dosage: 1 DF,QD
     Route: 065
  3. FLUMAX [FLUCONAZOLE] [Concomitant]
     Route: 065
  4. SYNTHROID [Concomitant]
     Active Substance: LEVOTHYROXINE SODIUM
     Route: 065
  5. GILENYA [Concomitant]
     Active Substance: FINGOLIMOD HYDROCHLORIDE
     Route: 065
  6. VALACYCLOVIR [Concomitant]
     Active Substance: VALACYCLOVIR HYDROCHLORIDE
     Route: 065
  7. LEXAPRO [Concomitant]
     Active Substance: ESCITALOPRAM OXALATE
     Indication: DEPRESSION
     Dosage: UNK UNK,UNK
     Route: 065
  8. ALEMTUZUMAB [Suspect]
     Active Substance: ALEMTUZUMAB
     Dosage: 12 MG, QD
     Route: 041
     Dates: start: 20160613, end: 20160617
  9. FLOMAX [Concomitant]
     Active Substance: TAMSULOSIN HYDROCHLORIDE
     Indication: MICTURITION DISORDER
     Dosage: UNK UNK,UNK
     Route: 065
  10. PROTONIX [OMEPRAZOLE] [Concomitant]
     Active Substance: OMEPRAZOLE
     Route: 065

REACTIONS (45)
  - Drug hypersensitivity [Recovered/Resolved]
  - Rash macular [Not Recovered/Not Resolved]
  - Nitrite urine present [Not Recovered/Not Resolved]
  - Bacterial test positive [Recovered/Resolved]
  - Red blood cell count decreased [Recovered/Resolved]
  - Pyrexia [Recovered/Resolved]
  - Syncope [Recovered/Resolved]
  - Platelet count decreased [Recovered/Resolved]
  - Urinary casts [Recovered/Resolved]
  - Crystal urine present [Recovered/Resolved]
  - Myelocyte count increased [Unknown]
  - Haemoglobin increased [Recovered/Resolved]
  - Wheezing [Recovered/Resolved]
  - Urticaria [Unknown]
  - Autoimmune disorder [Unknown]
  - CD4 lymphocytes decreased [Recovered/Resolved]
  - CD4 lymphocyte percentage decreased [Not Recovered/Not Resolved]
  - Gingival bleeding [Unknown]
  - Pneumonia [Unknown]
  - Blood creatinine decreased [Recovered/Resolved]
  - Blood glucose increased [Unknown]
  - Urine leukocyte esterase positive [Not Recovered/Not Resolved]
  - White blood cells urine positive [Not Recovered/Not Resolved]
  - Lymphocyte count decreased [Recovered/Resolved]
  - Off label use [Unknown]
  - Immune thrombocytopenia [Unknown]
  - Epistaxis [Unknown]
  - Bedridden [Unknown]
  - Red cell distribution width increased [Recovered/Resolved]
  - Blood urine present [Recovered/Resolved]
  - Thrombocytopenia [Not Recovered/Not Resolved]
  - pH urine increased [Recovered/Resolved]
  - Glucose urine present [Recovered/Resolved]
  - Red blood cell count increased [Recovered/Resolved]
  - Haemoglobin decreased [Recovered/Resolved]
  - Eosinophil count decreased [Recovered/Resolved]
  - Urticaria [Recovered/Resolved]
  - Urinary sediment present [Recovered/Resolved]
  - Neutrophil count increased [Recovered/Resolved]
  - Protein urine present [Recovered/Resolved]
  - Monocyte count decreased [Recovered/Resolved]
  - Haemorrhage [Unknown]
  - Haematocrit increased [Recovered/Resolved]
  - Haematocrit decreased [Recovered/Resolved]
  - Urine abnormality [Not Recovered/Not Resolved]

NARRATIVE: CASE EVENT DATE: 201706
